FAERS Safety Report 4295739-5 (Version None)
Quarter: 2004Q1

REPORT INFORMATION
  Report Type: 
  Country: None (occurrence: None)
  Receive Date: 20040216
  Receipt Date: 20031020
  Transmission Date: 20041129
  Serious: No
  Sender: FDA-Public Use
  Company Number: US-GLAXOSMITHKLINE-A0431222A

PATIENT
  Age: 34 Year
  Sex: Male

DRUGS (3)
  1. LAMICTAL [Suspect]
     Indication: BIPOLAR DISORDER
     Dosage: 200MG PER DAY
     Route: 048
     Dates: start: 20030901
  2. REMERON [Suspect]
  3. NEURONTIN [Concomitant]

REACTIONS (3)
  - DISCOMFORT [None]
  - FEELING HOT [None]
  - RASH [None]
